FAERS Safety Report 24014194 (Version 1)
Quarter: 2024Q2

REPORT INFORMATION
  Report Type: Spontaneous
  Country: PL (occurrence: PL)
  Receive Date: 20240626
  Receipt Date: 20240626
  Transmission Date: 20240716
  Serious: Yes (Hospitalization, Other)
  Sender: FDA-Public Use
  Company Number: PL-Accord-430796

PATIENT
  Age: 52 Year
  Sex: Female

DRUGS (3)
  1. MYCOPHENOLATE MOFETIL [Suspect]
     Active Substance: MYCOPHENOLATE MOFETIL
     Indication: Immunosuppressant drug therapy
     Dates: start: 2014
  2. TACROLIMUS [Suspect]
     Active Substance: TACROLIMUS
     Indication: Immunosuppressant drug therapy
     Dates: start: 2014
  3. PREDNISOLONE [Suspect]
     Active Substance: PREDNISOLONE
     Indication: Immunosuppressant drug therapy
     Dosage: OVER 12 MONTHS.
     Dates: start: 2014

REACTIONS (4)
  - Progressive multifocal leukoencephalopathy [Recovering/Resolving]
  - Acinetobacter infection [Unknown]
  - Cytomegalovirus infection [Recovered/Resolved]
  - Mycobacterial infection [Unknown]

NARRATIVE: CASE EVENT DATE: 20180101
